FAERS Safety Report 25938490 (Version 1)
Quarter: 2025Q4

REPORT INFORMATION
  Report Type: Spontaneous
  Country: CA (occurrence: CA)
  Receive Date: 20251019
  Receipt Date: 20251019
  Transmission Date: 20260118
  Serious: Yes (Death)
  Sender: CELLTRION
  Company Number: CA-CELLTRION INC.-2025CA037411

PATIENT

DRUGS (1)
  1. STEQEYMA [Suspect]
     Active Substance: USTEKINUMAB-STBA
     Indication: Psoriasis
     Dosage: 45 MG EVERY 12 WEEKS
     Route: 058
     Dates: start: 20250110, end: 20250630

REACTIONS (1)
  - Death [Fatal]

NARRATIVE: CASE EVENT DATE: 20250923
